FAERS Safety Report 4870816-6 (Version None)
Quarter: 2006Q1

REPORT INFORMATION
  Report Type: 
  Country: None (occurrence: None)
  Receive Date: 20060103
  Receipt Date: 20051220
  Transmission Date: 20060701
  Serious: Yes (Hospitalization, Other)
  Sender: FDA-Public Use
  Company Number: US-MERCK-0512USA03352

PATIENT
  Age: 71 Year
  Sex: Female
  Weight: 106 kg

DRUGS (1)
  1. VIOXX [Suspect]
     Route: 048
     Dates: start: 20030219, end: 20040915

REACTIONS (2)
  - CARDIAC FAILURE CONGESTIVE [None]
  - MYOCARDIAL INFARCTION [None]
